FAERS Safety Report 6554640-4 (Version None)
Quarter: 2010Q1

REPORT INFORMATION
  Report Type: 
  Country: None (occurrence: None)
  Receive Date: 20100127
  Receipt Date: 20100121
  Transmission Date: 20100710
  Serious: Yes (Disabling, Other)
  Sender: FDA-Public Use
  Company Number: US-PFIZER INC-2010009423

PATIENT
  Sex: Female
  Weight: 134 kg

DRUGS (1)
  1. DEPO-PROVERA [Suspect]
     Indication: CONTRACEPTION
     Dosage: UNK
     Dates: start: 20030401, end: 20040101

REACTIONS (6)
  - ANOVULATORY CYCLE [None]
  - ANXIETY [None]
  - DEPRESSION [None]
  - INFERTILITY [None]
  - MENSTRUATION IRREGULAR [None]
  - WEIGHT INCREASED [None]
